FAERS Safety Report 17906207 (Version 4)
Quarter: 2022Q3

REPORT INFORMATION
  Report Type: Spontaneous
  Country: US (occurrence: US)
  Receive Date: 20200617
  Receipt Date: 20220803
  Transmission Date: 20221027
  Serious: Yes (Hospitalization, Other)
  Sender: FDA-Public Use
  Company Number: US-PFIZER INC-2017357102

PATIENT
  Age: 60 Year
  Sex: Female
  Weight: 77.11 kg

DRUGS (10)
  1. XELJANZ [Suspect]
     Active Substance: TOFACITINIB CITRATE
     Indication: Rheumatoid arthritis
     Dosage: 5 MG, 2X/DAY
     Route: 048
     Dates: end: 202204
  2. SEROQUEL [Concomitant]
     Active Substance: QUETIAPINE FUMARATE
     Indication: Insomnia
     Dosage: UNK, 1X/DAY (50 MG TO 100 MG; TAKES ONE OR TWO AT NIGHT)
     Dates: start: 20200427
  3. SEROQUEL [Concomitant]
     Active Substance: QUETIAPINE FUMARATE
     Indication: Depression
  4. SEROQUEL [Concomitant]
     Active Substance: QUETIAPINE FUMARATE
     Indication: Anxiety
  5. ZOLOFT [Concomitant]
     Active Substance: SERTRALINE HYDROCHLORIDE
     Indication: Depression
     Dosage: 200 MG ONCE A DAY IN THE MORNING
     Dates: start: 2015
  6. ZOLOFT [Concomitant]
     Active Substance: SERTRALINE HYDROCHLORIDE
     Indication: Anxiety
  7. CLONAZEPAM [Concomitant]
     Active Substance: CLONAZEPAM
     Indication: Depression
     Dosage: UP TO 2 MG PER DAY
     Dates: start: 1990
  8. CLONAZEPAM [Concomitant]
     Active Substance: CLONAZEPAM
     Indication: Anxiety
  9. CLONAZEPAM [Concomitant]
     Active Substance: CLONAZEPAM
     Indication: Insomnia
  10. PLAQUENIL [Concomitant]
     Active Substance: HYDROXYCHLOROQUINE SULFATE
     Indication: Rheumatoid arthritis
     Dosage: 200 MG, 2X/DAY
     Dates: start: 20200504

REACTIONS (12)
  - Pulmonary embolism [Recovered/Resolved]
  - Rheumatic disorder [Unknown]
  - Migraine [Unknown]
  - Neuropathy peripheral [Unknown]
  - Body tinea [Recovering/Resolving]
  - Skin cancer [Recovering/Resolving]
  - Fall [Unknown]
  - Foot fracture [Unknown]
  - Ligament rupture [Unknown]
  - Diabetic neuropathy [Not Recovered/Not Resolved]
  - Hypoaesthesia [Unknown]
  - Joint swelling [Unknown]

NARRATIVE: CASE EVENT DATE: 20150801
